FAERS Safety Report 20811037 (Version 1)
Quarter: 2022Q2

REPORT INFORMATION
  Report Type: Spontaneous
  Country: CA (occurrence: CA)
  Receive Date: 20220510
  Receipt Date: 20220510
  Transmission Date: 20220720
  Serious: Yes (Other)
  Sender: FDA-Public Use
  Company Number: CA-BRISTOL-MYERS SQUIBB COMPANY-BMS-2020-043861

PATIENT
  Age: 57 Year
  Sex: Female

DRUGS (11)
  1. ORENCIA [Suspect]
     Active Substance: ABATACEPT
     Indication: Rheumatoid arthritis
     Dosage: 250 MILLIGRAM
     Route: 058
  2. ORENCIA [Suspect]
     Active Substance: ABATACEPT
     Route: 065
  3. SULFASALAZINE [Concomitant]
     Active Substance: SULFASALAZINE
     Indication: Product used for unknown indication
     Dosage: UNK
     Route: 058
  4. HYDROXYCHLOROQUINE [Concomitant]
     Active Substance: HYDROXYCHLOROQUINE
     Indication: Product used for unknown indication
     Dosage: UNK
     Route: 058
  5. HYALURONIDASE (HUMAN RECOMBINANT)\RITUXIMAB [Concomitant]
     Active Substance: HYALURONIDASE (HUMAN RECOMBINANT)\RITUXIMAB
     Indication: Rheumatoid arthritis
     Dosage: 1000 MILLIGRAM
     Route: 058
  6. HUMIRA [Concomitant]
     Active Substance: ADALIMUMAB
     Indication: Rheumatoid arthritis
     Dosage: 40 MILLIGRAM
     Route: 058
  7. ARAVA [Concomitant]
     Active Substance: LEFLUNOMIDE
     Indication: Rheumatoid arthritis
     Dosage: 10 MILLIGRAM
     Route: 065
  8. ACTEMRA [Concomitant]
     Active Substance: TOCILIZUMAB
     Indication: Product used for unknown indication
     Dosage: 650 MILLIGRAM, QMO
     Route: 065
  9. METHOTREXATE [Concomitant]
     Active Substance: METHOTREXATE
     Indication: Rheumatoid arthritis
     Dosage: 20 MILLIGRAM, QWK
     Route: 065
  10. PREDNISONE [Concomitant]
     Active Substance: PREDNISONE
     Indication: Product used for unknown indication
     Dosage: 40 MILLIGRAM
     Route: 065
  11. PREDNISONE [Concomitant]
     Active Substance: PREDNISONE
     Dosage: 250 MILLIGRAM
     Route: 065

REACTIONS (4)
  - Rheumatoid arthritis [Not Recovered/Not Resolved]
  - Drug ineffective [Not Recovered/Not Resolved]
  - Off label use [Unknown]
  - Contraindicated product administered [Not Recovered/Not Resolved]
